FAERS Safety Report 4510622-5 (Version None)
Quarter: 2004Q4

REPORT INFORMATION
  Report Type: 
  Country: None (occurrence: None)
  Receive Date: 20041119
  Receipt Date: 20041109
  Transmission Date: 20050328
  Serious: Yes (Death)
  Sender: FDA-Public Use
  Company Number: BRO-007784

PATIENT
  Age: 55 Year
  Sex: Male

DRUGS (7)
  1. IOPAMIDOL [Suspect]
     Indication: COMPUTERISED TOMOGRAM
     Dosage: 100 ML IV
     Route: 042
     Dates: start: 20040227, end: 20040227
  2. IOPAMIDOL [Suspect]
     Indication: POLYTRAUMATISM
     Dosage: 100 ML IV
     Route: 042
     Dates: start: 20040227, end: 20040227
  3. LASIX [Concomitant]
  4. TRITEREN [Concomitant]
  5. LIVACT [Concomitant]
  6. SELBEX (TEPRENONE) [Concomitant]
  7. LACTULOSE [Concomitant]

REACTIONS (3)
  - HEPATIC HAEMORRHAGE [None]
  - HEPATIC RUPTURE [None]
  - MULTI-ORGAN FAILURE [None]
